FAERS Safety Report 9840693 (Version 2)
Quarter: 2014Q1

REPORT INFORMATION
  Report Type: Spontaneous
  Country: JP (occurrence: JP)
  Receive Date: 20140124
  Receipt Date: 20140304
  Transmission Date: 20141002
  Serious: Yes (Hospitalization)
  Sender: FDA-Public Use
  Company Number: PHJP2014JP000463

PATIENT
  Age: 44 Year
  Sex: Female

DRUGS (3)
  1. TEGRETOL TAB 200MG [Suspect]
     Indication: DEPRESSION
     Dosage: 200 MG, UNK
     Route: 048
  2. ALPRAZOLAM [Concomitant]
  3. LORAZEPAM [Concomitant]

REACTIONS (12)
  - Drug reaction with eosinophilia and systemic symptoms [Recovered/Resolved]
  - Pyrexia [Recovering/Resolving]
  - Nausea [Unknown]
  - Headache [Unknown]
  - Flushing [Recovering/Resolving]
  - Erythema [Recovering/Resolving]
  - Drug eruption [Recovering/Resolving]
  - Dyspnoea [Unknown]
  - White blood cell count increased [Unknown]
  - Eosinophil count increased [Unknown]
  - Hepatic function abnormal [Unknown]
  - Lymphadenopathy [Unknown]
